FAERS Safety Report 8101811 (Version 4)
Quarter: 2013Q3

REPORT INFORMATION
  Report Type: Spontaneous
  Country: NO (occurrence: NO)
  Receive Date: 20110823
  Receipt Date: 20130903
  Transmission Date: 20140515
  Serious: Yes (Life-Threatening, Hospitalization)
  Sender: FDA-Public Use
  Company Number: NO-PFIZER INC-2011193358

PATIENT
  Age: 45 Year
  Sex: Female

DRUGS (4)
  1. CYTOTEC [Suspect]
     Indication: ABORTION SPONTANEOUS
     Dosage: 0.2 MG, 2X/DAY
     Route: 048
     Dates: start: 20110731, end: 20110731
  2. CYTOTEC [Suspect]
     Indication: VAGINAL HAEMORRHAGE
  3. INSULATARD [Concomitant]
     Indication: TYPE 2 DIABETES MELLITUS
     Dosage: 18 E IN THE EVENING
  4. RAMIPRIL [Concomitant]
     Indication: HYPERTENSION
     Dosage: 5 MG, 1X/DAY
     Route: 048
     Dates: start: 2011

REACTIONS (4)
  - Off label use [Recovering/Resolving]
  - Cardiac failure [Recovering/Resolving]
  - Acute myocardial infarction [Recovering/Resolving]
  - Cardiogenic shock [Recovering/Resolving]
